FAERS Safety Report 6946475-5 (Version None)
Quarter: 2010Q3

REPORT INFORMATION
  Report Type: 
  Country: None (occurrence: None)
  Receive Date: 20100824
  Receipt Date: 20100813
  Transmission Date: 20110219
  Serious: Yes (Hospitalization)
  Sender: FDA-Public Use
  Company Number: DSU-2010-04146

PATIENT
  Age: 59 Year
  Sex: Female
  Weight: 83.9154 kg

DRUGS (6)
  1. BENICAR [Suspect]
     Indication: HYPERTENSION
     Dosage: 20 MG, QD, PER ORAL, 10 MG, 1/2 TABLET QD, PER ORAL
     Route: 048
     Dates: end: 20090901
  2. BENICAR [Suspect]
     Indication: HYPERTENSION
     Dosage: 20 MG, QD, PER ORAL, 10 MG, 1/2 TABLET QD, PER ORAL
     Route: 048
     Dates: start: 20090901
  3. LEVOTHYROXINE (LEVOTHYROXINE) (LEVOTHYROXINE) [Concomitant]
  4. TRAMADOL HCL [Concomitant]
  5. TOVIAZ (FESOTERODINE FUMARATE) (FESOTERODINE FUMARATE) [Concomitant]
  6. KAPIDAX (DEXLANSOPRAZOLE) (DEXLANSOPRAZOLE) [Concomitant]

REACTIONS (4)
  - CHEST PAIN [None]
  - CORONARY ARTERY OCCLUSION [None]
  - MEDICAL DEVICE IMPLANTATION [None]
  - WRONG TECHNIQUE IN DRUG USAGE PROCESS [None]
